FAERS Safety Report 8701537 (Version 3)
Quarter: 2012Q4

REPORT INFORMATION
  Report Type: 
  Country: US (occurrence: US)
  Receive Date: 20120803
  Receipt Date: 20120913
  Transmission Date: 20130627
  Serious: Yes (Hospitalization, Other)
  Sender: FDA-Public Use
  Company Number: US-AMGEN-USASP2012047507

PATIENT
  Age: 64 Year
  Sex: Female

DRUGS (1)
  1. ENBREL [Suspect]
     Indication: RHEUMATOID ARTHRITIS
     Dosage: 50 mg, qwk
     Route: 058
     Dates: start: 20100301

REACTIONS (15)
  - Breast cancer metastatic [Not Recovered/Not Resolved]
  - Hip arthroplasty [Recovered/Resolved]
  - Fall [Recovered/Resolved]
  - Fractured sacrum [Recovered/Resolved]
  - Breast cancer [Not Recovered/Not Resolved]
  - Lymphoedema [Not Recovered/Not Resolved]
  - Wound [Not Recovered/Not Resolved]
  - Impaired healing [Not Recovered/Not Resolved]
  - Animal scratch [Not Recovered/Not Resolved]
  - Weight decreased [Not Recovered/Not Resolved]
  - Upper limb fracture [Not Recovered/Not Resolved]
  - Mass [Not Recovered/Not Resolved]
  - Musculoskeletal disorder [Not Recovered/Not Resolved]
  - White blood cell count decreased [Unknown]
  - Infection [Not Recovered/Not Resolved]
